FAERS Safety Report 4428726-4 (Version None)
Quarter: 2004Q3

REPORT INFORMATION
  Report Type: 
  Country: None (occurrence: None)
  Receive Date: 20040818
  Receipt Date: 20040225
  Transmission Date: 20050211
  Serious: No
  Sender: FDA-Public Use
  Company Number: US-BRISTOL-MYERS SQUIBB COMPANY-12516464

PATIENT
  Age: 4 Decade
  Sex: Male

DRUGS (1)
  1. TEQUIN [Suspect]
     Indication: RESPIRATORY TRACT INFECTION
     Route: 048
     Dates: start: 20031101

REACTIONS (2)
  - ARTHRITIS [None]
  - PSORIASIS [None]
